FAERS Safety Report 5511230-X (Version None)
Quarter: 2007Q4

REPORT INFORMATION
  Report Type: 
  Country: None (occurrence: None)
  Receive Date: 20071107
  Receipt Date: 20071024
  Transmission Date: 20080405
  Serious: Yes (Hospitalization)
  Sender: FDA-Public Use
  Company Number: CIP07002257

PATIENT
  Age: 76 Year
  Sex: Female

DRUGS (15)
  1. FURADANTIN [Suspect]
     Indication: URINARY TRACT INFECTION
     Dosage: 150 MG, DAILY, ORAL
     Route: 048
     Dates: start: 20070904, end: 20070911
  2. ACTONEL [Suspect]
     Dosage: 35 MG, ONCE WEEKLY, ORAL
     Route: 048
  3. DAONIL(GLIBENCLAMIDE) [Suspect]
     Indication: TYPE 2 DIABETES MELLITUS
     Dosage: 5 MG, 3 DAY
  4. INEXIUM /01479302/(ESOMPERAZOLE MAGNESIUM) [Suspect]
     Dosage: 20 MG DAILY, ORAL
     Route: 048
  5. TRIATEC /00116401/(PARACETAMOL, CODEINE PHOSPHATE) [Suspect]
     Dosage: 7.5 MG DAILY
  6. LEVOTHYROXINE SODIUM [Concomitant]
  7. PROPRANOLOL [Concomitant]
  8. PROPRANOLOL [Concomitant]
  9. FERROUS SULFATE TAB [Concomitant]
  10. GLUCOPHAGE [Concomitant]
  11. INSULATARD (INSULIN INJECTION, ISOPHANE) INJECTION [Concomitant]
  12. LOVENOX [Concomitant]
  13. SPIRIVA [Concomitant]
  14. SERETIDE (SALMETEROL XINAFOATE, FLUTICASONE PROPIONATE) [Concomitant]
  15. LASIX [Concomitant]

REACTIONS (1)
  - PANCYTOPENIA [None]
